FAERS Safety Report 8710976 (Version 8)
Quarter: 2014Q4

REPORT INFORMATION
  Report Type: Report from Study
  Country: JP (occurrence: JP)
  Receive Date: 20120807
  Receipt Date: 20141203
  Transmission Date: 20150529
  Serious: Yes (Hospitalization, Other)
  Sender: FDA-Public Use
  Company Number: JP-GILEAD-2012-0058996

PATIENT
  Age: 32 Year
  Sex: Female

DRUGS (18)
  1. AMBRISENTAN [Suspect]
     Active Substance: AMBRISENTAN
     Dosage: 5 MG, QD
     Route: 048
     Dates: start: 20120426, end: 20120608
  2. WARFARIN [Suspect]
     Active Substance: WARFARIN
     Dosage: UNK
     Route: 048
     Dates: start: 20120915
  3. MUCOSTA [Concomitant]
     Active Substance: REBAMIPIDE
     Indication: GASTRITIS PROPHYLAXIS
     Dosage: UNK
     Route: 048
     Dates: start: 20120821, end: 20120912
  4. CARELOAD [Concomitant]
     Active Substance: BERAPROST SODIUM
     Dosage: UNK
     Route: 048
     Dates: start: 20140214
  5. IMURAN [Concomitant]
     Active Substance: AZATHIOPRINE
     Indication: SYSTEMIC LUPUS ERYTHEMATOSUS
     Dosage: 50 MG, QD
     Route: 048
     Dates: end: 20120608
  6. AMBRISENTAN [Suspect]
     Active Substance: AMBRISENTAN
     Dosage: 5 MG, QD
     Route: 048
     Dates: start: 20120919
  7. NEORAL [Concomitant]
     Active Substance: CYCLOSPORINE
     Indication: SYSTEMIC LUPUS ERYTHEMATOSUS
     Dosage: 150 MG, UNK
     Route: 048
     Dates: end: 20120608
  8. WARFARIN [Suspect]
     Active Substance: WARFARIN
     Indication: PRODUCT USED FOR UNKNOWN INDICATION
     Dosage: 5 MG, QD
     Route: 048
     Dates: end: 20120608
  9. REVATIO [Concomitant]
     Active Substance: SILDENAFIL CITRATE
     Indication: PULMONARY ARTERIAL HYPERTENSION
     Dosage: 60 MG, UNK
     Route: 048
  10. CARELOAD [Concomitant]
     Active Substance: BERAPROST SODIUM
     Indication: PULMONARY ARTERIAL HYPERTENSION
     Dosage: 120 MG, UNK
     Route: 048
     Dates: start: 20110420, end: 20120608
  11. IMURAN [Concomitant]
     Active Substance: AZATHIOPRINE
     Dosage: UNK
     Route: 048
     Dates: start: 20121004
  12. CAPROCIN [Concomitant]
     Indication: PULMONARY ARTERIAL HYPERTENSION
     Dosage: UNK
     Route: 042
     Dates: start: 20120622, end: 20120911
  13. AMBRISENTAN [Suspect]
     Active Substance: AMBRISENTAN
     Indication: PULMONARY ARTERIAL HYPERTENSION
     Dosage: 2.5 MG, QD
     Route: 048
     Dates: start: 20120307, end: 20120425
  14. CARELOAD [Concomitant]
     Active Substance: BERAPROST SODIUM
     Dosage: UNK
     Route: 048
     Dates: start: 20120926, end: 20131025
  15. PREDNISOLONE. [Concomitant]
     Active Substance: PREDNISOLONE
     Indication: SYSTEMIC LUPUS ERYTHEMATOSUS
     Dosage: 6 MG, UNK
     Route: 048
  16. FLOMOX                             /01418603/ [Concomitant]
     Dosage: UNK
     Route: 048
     Dates: start: 20121129, end: 20121202
  17. FLOMOX                             /01418603/ [Concomitant]
     Indication: PROPHYLAXIS
     Dosage: UNK, QD
     Route: 048
     Dates: start: 20120913, end: 20120920
  18. NEORAL [Concomitant]
     Active Substance: CYCLOSPORINE
     Dosage: UNK
     Route: 048
     Dates: start: 20121004

REACTIONS (9)
  - Headache [Recovered/Resolved]
  - Abortion spontaneous [Recovered/Resolved]
  - Hypokalaemia [Recovered/Resolved]
  - Exposure during pregnancy [Unknown]
  - Retained placenta or membranes [Recovered/Resolved]
  - Genital haemorrhage [Recovered/Resolved]
  - Uterine cervical erosion [Recovered/Resolved]
  - Anaemia [Recovered/Resolved]
  - Nasopharyngitis [Recovered/Resolved]

NARRATIVE: CASE EVENT DATE: 20120307
